FAERS Safety Report 21289012 (Version 1)
Quarter: 2022Q3

REPORT INFORMATION
  Report Type: Spontaneous
  Country: US (occurrence: US)
  Receive Date: 20220902
  Receipt Date: 20220902
  Transmission Date: 20221026
  Serious: No
  Sender: FDA-Public Use
  Company Number: US-ABBVIE-22K-163-4381291-00

PATIENT
  Sex: Female

DRUGS (2)
  1. LUPRON DEPOT-PED [Suspect]
     Active Substance: LEUPROLIDE ACETATE
     Indication: Infertility
     Route: 030
  2. LUPRON DEPOT-PED [Suspect]
     Active Substance: LEUPROLIDE ACETATE
     Indication: Precocious puberty

REACTIONS (11)
  - Musculoskeletal discomfort [Unknown]
  - Abdominal injury [Unknown]
  - Irritable bowel syndrome [Unknown]
  - Spinal pain [Unknown]
  - Joint stiffness [Unknown]
  - Hypoaesthesia [Unknown]
  - Insomnia [Unknown]
  - Weight increased [Unknown]
  - Headache [Unknown]
  - Hot flush [Unknown]
  - Arthralgia [Unknown]
